FAERS Safety Report 7252399-9 (Version None)
Quarter: 2011Q1

REPORT INFORMATION
  Report Type: 
  Country: None (occurrence: None)
  Receive Date: 20110129
  Receipt Date: 20100119
  Transmission Date: 20110831
  Serious: Yes (Other)
  Sender: FDA-Public Use
  Company Number: US-ABBOTT-10P-163-0620230-00

PATIENT
  Sex: Female
  Weight: 81.72 kg

DRUGS (2)
  1. OXYCODONE 5/APAP 500 [Concomitant]
     Indication: ANKYLOSING SPONDYLITIS
     Dosage: 2 PILLS EVERY 3 HOURS AS NEEDED
  2. HUMIRA [Suspect]
     Indication: ANKYLOSING SPONDYLITIS
     Dates: start: 20091203, end: 20091213

REACTIONS (2)
  - GAIT DISTURBANCE [None]
  - FOOT FRACTURE [None]
